FAERS Safety Report 7642846-2 (Version None)
Quarter: 2011Q3

REPORT INFORMATION
  Report Type: 
  Country: None (occurrence: None)
  Receive Date: 20110728
  Receipt Date: 20110725
  Transmission Date: 20111222
  Serious: Yes (Hospitalization, Other)
  Sender: FDA-Public Use
  Company Number: US-B.I. PHARMACEUTICALS,INC./RIDGEFIELD-2011-BP-13844BP

PATIENT
  Age: 83 Year
  Sex: Female
  Weight: 62 kg

DRUGS (4)
  1. PRADAXA [Suspect]
     Indication: ATRIAL FIBRILLATION
     Dosage: 300 MG
     Dates: start: 20110512, end: 20110517
  2. PLAVIX [Concomitant]
  3. IBUPROFEN [Concomitant]
     Dosage: 200 MG
  4. CLOPIDOGREL [Concomitant]
     Dosage: 75 MG
     Dates: start: 20010731

REACTIONS (2)
  - RECTAL HAEMORRHAGE [None]
  - GASTROINTESTINAL HAEMORRHAGE [None]
